FAERS Safety Report 23804955 (Version 4)
Quarter: 2024Q3

REPORT INFORMATION
  Report Type: Other
  Country: PL (occurrence: PL)
  Receive Date: 20240501
  Receipt Date: 20240712
  Transmission Date: 20241017
  Serious: Yes (Hospitalization, Disabling, Other)
  Sender: DENTSPLY
  Company Number: PL-DENTSPLY-2024SCDP000122

PATIENT
  Age: 24 Year
  Sex: Male

DRUGS (28)
  1. LIDOCAINE [Suspect]
     Active Substance: LIDOCAINE
     Indication: Painful ejaculation
     Dosage: UNK DOSE OF LIGNOCAINE
     Route: 042
  2. LIDOCAINE [Suspect]
     Active Substance: LIDOCAINE
     Indication: Pain
  3. CIPROFLOXACIN [Interacting]
     Active Substance: CIPROFLOXACIN
     Indication: Painful ejaculation
     Dosage: 1000 MILLIGRAM, QD CIPROFLOXACIN FILM-COATED TABLET (PDF) (500 MG/0.5 DAY) (ONCE DAILY) (2 ? 500 MG)
     Route: 048
  4. METAMIZOLE [Suspect]
     Active Substance: METAMIZOLE
     Indication: Pain
     Dosage: UNK
     Route: 065
  5. METAMIZOLE [Suspect]
     Active Substance: METAMIZOLE
     Indication: Painful ejaculation
  6. VALPROIC ACID [Suspect]
     Active Substance: VALPROIC ACID
     Indication: Painful ejaculation
     Dosage: UNK SYRUP (PDF)
     Route: 065
  7. VALPROIC ACID [Suspect]
     Active Substance: VALPROIC ACID
     Indication: Pain
     Dosage: UNK
     Route: 042
  8. MAGNESIUM SULFATE [Suspect]
     Active Substance: MAGNESIUM SULFATE\MAGNESIUM SULFATE HEPTAHYDRATE
     Indication: Painful ejaculation
     Dosage: UNK
     Route: 065
  9. MAGNESIUM SULFATE [Suspect]
     Active Substance: MAGNESIUM SULFATE\MAGNESIUM SULFATE HEPTAHYDRATE
     Indication: Pain
  10. LEVOFLOXACIN [Interacting]
     Active Substance: LEVOFLOXACIN
     Indication: Perineal pain
     Dosage: 1000 MILLIGRAM, QD (500 MG/0.5 DAY) (2 ? 500 MG) LEVOFLOXACIN FILM-COATED TABLET (PDF)
     Route: 048
  11. LEVOFLOXACIN [Interacting]
     Active Substance: LEVOFLOXACIN
     Indication: Depression
  12. LEVOFLOXACIN [Interacting]
     Active Substance: LEVOFLOXACIN
     Indication: Painful ejaculation
  13. MIANSERIN [Interacting]
     Active Substance: MIANSERIN
     Indication: Depression
     Dosage: 30 MILLIGRAM, QD
     Route: 048
  14. MIANSERIN [Interacting]
     Active Substance: MIANSERIN
     Indication: Insomnia
  15. MIANSERIN [Interacting]
     Active Substance: MIANSERIN
     Indication: Anxiety
  16. TAMSULOSIN [Suspect]
     Active Substance: TAMSULOSIN
     Indication: Painful ejaculation
     Dosage: 0.4 MILLIGRAM, QD, HS (SUSTAINED RELEASE) TAMSULOSIN SR PER NIGHT
     Route: 042
  17. TAMSULOSIN [Suspect]
     Active Substance: TAMSULOSIN
     Indication: Perineal pain
  18. ESCITALOPRAM [Interacting]
     Active Substance: ESCITALOPRAM OXALATE
     Indication: Depression
     Dosage: 10 MILLIGRAM, QD ESCITALOPRAM 10 MG FILM COATED TABLETS (PDF)
     Route: 048
  19. ESCITALOPRAM [Interacting]
     Active Substance: ESCITALOPRAM OXALATE
     Indication: Insomnia
  20. SILDENAFIL [Suspect]
     Active Substance: SILDENAFIL
     Indication: Sexual dysfunction
     Dosage: 50 MILLIGRAM, QD (AS NECESSARY) (BEFORE INTERCOURSE)
     Route: 065
  21. SILDENAFIL [Suspect]
     Active Substance: SILDENAFIL
     Indication: Neuropathy peripheral
  22. SILDENAFIL [Suspect]
     Active Substance: SILDENAFIL
     Indication: Painful ejaculation
  23. DICLOFENAC [Suspect]
     Active Substance: DICLOFENAC
     Indication: Painful ejaculation
     Dosage: 100 MILLIGRAM, QD (50 MG/0.5 DAY) (2X PER DAY) (50 MILLIGRAM, BID) DICLOFENAC WORLD SUPPOSITORY (PDF
  24. PREGABALIN [Suspect]
     Active Substance: PREGABALIN
     Indication: Painful ejaculation
     Dosage: 25 MILLIGRAM, QD (ONCE A DAY AT NIGHT)
     Route: 065
  25. ALPRAZOLAM [Suspect]
     Active Substance: ALPRAZOLAM
     Indication: Anxiety
     Dosage: 0.5 MILLIGRAM, QD (PER DAY)
     Route: 065
  26. VORTIOXETINE [Concomitant]
     Active Substance: VORTIOXETINE HYDROBROMIDE
     Indication: Product used for unknown indication
     Dosage: 10 MILLIGRAM (BDF) VORTIOXETINE
  27. MELATONIN [Concomitant]
     Active Substance: MELATONIN
     Indication: Insomnia
     Dosage: 2 MILLIGRAM, SUSTAINED-RELEASE
     Route: 065
  28. MELATONIN [Concomitant]
     Active Substance: MELATONIN
     Indication: Depression

REACTIONS (15)
  - Painful ejaculation [Recovered/Resolved]
  - Drug interaction [Recovered/Resolved]
  - Condition aggravated [None]
  - Pain [Recovered/Resolved]
  - Perineal pain [Recovered/Resolved]
  - Groin pain [None]
  - Burning sensation [None]
  - Drug ineffective [Unknown]
  - Therapy partial responder [Unknown]
  - Therapeutic product effect incomplete [Unknown]
  - Drug-disease interaction [Recovered/Resolved]
  - Anxiety [Unknown]
  - Product use in unapproved indication [Recovered/Resolved]
  - Drug ineffective for unapproved indication [Recovered/Resolved]
  - Product prescribing error [Unknown]
